FAERS Safety Report 6748653-7 (Version None)
Quarter: 2010Q2

REPORT INFORMATION
  Report Type: 
  Country: None (occurrence: None)
  Receive Date: 20100601
  Receipt Date: 20100521
  Transmission Date: 20101027
  Serious: Yes (Other)
  Sender: FDA-Public Use
  Company Number: GB-JNJFOC-20091007196

PATIENT
  Sex: Male

DRUGS (4)
  1. HALDOL [Suspect]
     Indication: DRUG USE FOR UNKNOWN INDICATION
     Route: 030
  2. HALDOL [Suspect]
     Route: 030
  3. AMISULPRIDE [Suspect]
     Indication: DRUG USE FOR UNKNOWN INDICATION
     Route: 065
  4. VITAMIN TAB [Concomitant]
     Indication: DRUG USE FOR UNKNOWN INDICATION
     Route: 065

REACTIONS (12)
  - APATHY [None]
  - EYE ROLLING [None]
  - FATIGUE [None]
  - GLAUCOMA [None]
  - HAND DEFORMITY [None]
  - HYPOKINESIA [None]
  - JAUNDICE [None]
  - NOCTURIA [None]
  - RESTLESS LEGS SYNDROME [None]
  - SALIVARY HYPERSECRETION [None]
  - TARDIVE DYSKINESIA [None]
  - TONGUE DISORDER [None]
